FAERS Safety Report 21614163 (Version 1)
Quarter: 2022Q4

REPORT INFORMATION
  Report Type: Other
  Country: GB (occurrence: GB)
  Receive Date: 20221118
  Receipt Date: 20221118
  Transmission Date: 20230113
  Serious: No
  Sender: FDA-Public Use
  Company Number: None

PATIENT
  Age: 35 Year
  Sex: Male
  Weight: 103 kg

DRUGS (10)
  1. SERTRALINE [Suspect]
     Active Substance: SERTRALINE HYDROCHLORIDE
     Indication: Ill-defined disorder
     Dosage: UNK
     Route: 065
     Dates: start: 20221103
  2. AMOXICILLIN [Concomitant]
     Active Substance: AMOXICILLIN
     Indication: Ill-defined disorder
     Dosage: UNK (1 CAPSULE)
     Route: 065
     Dates: start: 20221028, end: 20221104
  3. CHLORHEXIDINE GLUCONATE [Concomitant]
     Active Substance: CHLORHEXIDINE GLUCONATE
     Indication: Ill-defined disorder
     Dosage: UNK (1 APPLICATION)
     Route: 065
     Dates: start: 20220922, end: 20221031
  4. Derbac [Concomitant]
     Indication: Ill-defined disorder
     Dosage: UNK (AS DIRECTED)
     Route: 065
     Dates: start: 19970701, end: 20221101
  5. COLGATE DURAPHAT [Concomitant]
     Active Substance: SODIUM FLUORIDE
     Indication: Ill-defined disorder
     Dosage: UNK (1 APPLICATION)
     Route: 065
     Dates: start: 20220922, end: 20221031
  6. LANOLIN\LIGHT MINERAL OIL\PARAFFIN [Concomitant]
     Active Substance: LANOLIN\LIGHT MINERAL OIL\PARAFFIN
     Indication: Ill-defined disorder
     Dosage: UNK (1 APPLICATION)
     Route: 065
     Dates: start: 20221008, end: 20221105
  7. IBUPROFEN [Concomitant]
     Active Substance: IBUPROFEN
     Indication: Ill-defined disorder
     Dosage: 2 DOSAGE FORM
     Route: 065
     Dates: start: 20080916, end: 20221101
  8. NICOTINE BITARTRATE [Concomitant]
     Active Substance: NICOTINE BITARTRATE
     Indication: Ill-defined disorder
     Dosage: UNK (TAKE ONE EVERY 1 OR 2 HOURS FOR URGE TO SMOKE)
     Route: 065
     Dates: start: 20141113, end: 20221101
  9. ORLISTAT [Concomitant]
     Active Substance: ORLISTAT
     Indication: Ill-defined disorder
     Dosage: 1 DOSAGE FORM (1 CAPSULE)
     Route: 065
     Dates: start: 20220712, end: 20221031
  10. ACETAMINOPHEN [Concomitant]
     Active Substance: ACETAMINOPHEN
     Indication: Ill-defined disorder
     Dosage: UNK (1-2 TABLET)
     Route: 065
     Dates: start: 20221025, end: 20221025

REACTIONS (2)
  - Nausea [Recovered/Resolved]
  - Rash [Unknown]

NARRATIVE: CASE EVENT DATE: 20221105
